FAERS Safety Report 25779383 (Version 1)
Quarter: 2025Q3

REPORT INFORMATION
  Report Type: Spontaneous
  Country: GB (occurrence: GB)
  Receive Date: 20250909
  Receipt Date: 20250909
  Transmission Date: 20251020
  Serious: Yes (Hospitalization, Other)
  Sender: Kenvue
  Company Number: None

PATIENT

DRUGS (18)
  1. CETIRIZINE HYDROCHLORIDE [Suspect]
     Active Substance: CETIRIZINE HYDROCHLORIDE
     Indication: Product used for unknown indication
     Route: 065
  2. SERTRALINE [Concomitant]
     Active Substance: SERTRALINE HYDROCHLORIDE
     Indication: Product used for unknown indication
     Dosage: 100 MILLIGRAM, ONCE A DAY (ONE TO BE TAKEN EACH DAY)
     Route: 065
  3. LANSOPRAZOLE [Concomitant]
     Active Substance: LANSOPRAZOLE
     Indication: Product used for unknown indication
     Dosage: 15 MILLIGRAM, ONCE A DAY (ONE TO BE TAKEN EACH MORNING)
     Route: 065
  4. LEVOTHYROXINE [Concomitant]
     Active Substance: LEVOTHYROXINE
     Indication: Product used for unknown indication
     Dosage: 100 MICROGRAM, ONCE A DAY (ONE TO BE TAKEN DAILY)
     Route: 065
  5. LEVOTHYROXINE [Concomitant]
     Active Substance: LEVOTHYROXINE
     Dosage: 25 MICROGRAM, ONCE A DAY (ONE TO BE TAKEN EACH MORNING)
     Route: 065
  6. LEVOTHYROXINE [Concomitant]
     Active Substance: LEVOTHYROXINE
     Dosage: 50 MICROGRAM, ONCE A DAY (ONE TO BE TAKEN EACH MORNING)
     Route: 065
  7. Balneum plus [Concomitant]
     Indication: Product used for unknown indication
     Route: 065
  8. Dermol 200 [Concomitant]
     Indication: Product used for unknown indication
     Route: 065
  9. ENALAPRIL [Concomitant]
     Active Substance: ENALAPRIL
     Indication: Product used for unknown indication
     Dosage: 20 MILLIGRAM, ONCE A DAY (ONE TO BE TAKEN EACH DAY)
     Route: 065
  10. ENALAPRIL [Concomitant]
     Active Substance: ENALAPRIL
     Route: 065
  11. FOLIC ACID [Concomitant]
     Active Substance: FOLIC ACID
     Indication: Product used for unknown indication
     Dosage: 5 MILLIGRAM, ONCE A DAY (ONE TO BE TAKEN EACH DAY FOR 12 WEEKS THEN SWITCH TO OTCSTRENGTH / IMPROVE
     Route: 065
  12. SENNA [Concomitant]
     Active Substance: SENNOSIDES
     Indication: Product used for unknown indication
     Route: 065
  13. ENSURE [Concomitant]
     Active Substance: AMINO ACIDS\DEXTROSE\ELECTROLYTES NOS\SOYBEAN OIL\VITAMINS
     Indication: Product used for unknown indication
     Dosage: 1 DOSAGE FORM, TWICE A DAY (TAKE THE CONTENTS OF ONEBOTTLE)
     Route: 065
  14. TAMSULOSIN [Concomitant]
     Active Substance: TAMSULOSIN
     Indication: Product used for unknown indication
     Dosage: 400 MICROGRAM, ONCE A DAY (ONE TO BE TAKEN EACH DAY)
     Route: 065
     Dates: start: 20250318
  15. ACETAMINOPHEN [Concomitant]
     Active Substance: ACETAMINOPHEN
     Indication: Product used for unknown indication
     Dosage: 500 MILLIGRAM, FOUR TIME A DAY (ONE OR TWO TO BE TAKEN EVERY 4-6 HOURS UP TO FOURTIMES A DAY)
     Route: 065
  16. CLOPIDOGREL [Concomitant]
     Active Substance: CLOPIDOGREL BISULFATE
     Indication: Product used for unknown indication
     Dosage: 75 MILLIGRAM, ONCE A DAY (ONE TO BE TAKEN EACH DAY)
     Route: 065
  17. IBUPROFEN [Concomitant]
     Active Substance: IBUPROFEN
     Indication: Product used for unknown indication
     Dosage: UNK UNK, THRICE A DAY
     Route: 065
  18. AMLODIPINE [Concomitant]
     Active Substance: AMLODIPINE BESYLATE
     Indication: Product used for unknown indication
     Dosage: 5 MILLIGRAM, ONCE A DAY
     Route: 065

REACTIONS (1)
  - Delirium [Unknown]
